FAERS Safety Report 8785569 (Version 2)
Quarter: 2012Q4

REPORT INFORMATION
  Report Type: 
  Country: US (occurrence: US)
  Receive Date: 20120911
  Receipt Date: 20121102
  Transmission Date: 20130627
  Serious: Yes (Other)
  Sender: FDA-Public Use
  Company Number: US-ELI_LILLY_AND_COMPANY-US201201004825

PATIENT
  Age: 78 None
  Sex: Female

DRUGS (2)
  1. FORTEO [Suspect]
     Indication: OSTEOPOROSIS
     Dosage: 20 ug, qd
     Route: 065
     Dates: start: 20120113
  2. FORTEO [Suspect]
     Dosage: 20 ug, qd
     Dates: end: 20120806

REACTIONS (20)
  - Blindness unilateral [Recovered/Resolved]
  - Transient ischaemic attack [Unknown]
  - Cardiac valve disease [Unknown]
  - Aortic aneurysm [Unknown]
  - Rhinorrhoea [Not Recovered/Not Resolved]
  - Somnolence [Unknown]
  - Injection site erythema [Recovered/Resolved]
  - Sleep disorder due to a general medical condition [Unknown]
  - Nasopharyngitis [Not Recovered/Not Resolved]
  - Sinus congestion [Unknown]
  - Respiratory tract congestion [Unknown]
  - Palpitations [Recovered/Resolved]
  - Cough [Unknown]
  - Injection site pain [Unknown]
  - Heart rate increased [Unknown]
  - Fatigue [Unknown]
  - Depression [Unknown]
  - Breast pain [Recovered/Resolved]
  - Memory impairment [Unknown]
  - Blood cholesterol increased [Unknown]
